FAERS Safety Report 6148782-5 (Version None)
Quarter: 2009Q2

REPORT INFORMATION
  Report Type: 
  Country: None (occurrence: None)
  Receive Date: 20090408
  Receipt Date: 20090401
  Transmission Date: 20091009
  Serious: Yes (Hospitalization, Other)
  Sender: FDA-Public Use
  Company Number: AR-ELI_LILLY_AND_COMPANY-AR200904000334

PATIENT
  Age: 35 Year
  Sex: Male

DRUGS (1)
  1. MIDAX [Suspect]
     Indication: SCHIZOPHRENIA
     Dosage: 5 MG, UNKNOWN
     Route: 065

REACTIONS (4)
  - CONVULSION [None]
  - HYPONATRAEMIA [None]
  - RED BLOOD CELL COUNT INCREASED [None]
  - SUBARACHNOID HAEMORRHAGE [None]
